FAERS Safety Report 16674485 (Version 3)
Quarter: 2020Q4

REPORT INFORMATION
  Report Type: Spontaneous
  Country: US (occurrence: US)
  Receive Date: 20190806
  Receipt Date: 20201002
  Transmission Date: 20210113
  Serious: Yes (Other)
  Sender: FDA-Public Use
  Company Number: US-LUNDBECK-DKLU3002060

PATIENT
  Age: 13 Month
  Sex: Male

DRUGS (2)
  1. ACTH [Suspect]
     Active Substance: CORTICOTROPIN
     Indication: INFANTILE SPASMS
     Dosage: 150 U/M2/DAY (55U/D)
     Route: 065
  2. VIGABATRIN (FOR ORAL SOLUTION) [Suspect]
     Active Substance: VIGABATRIN
     Indication: INFANTILE SPASMS
     Route: 065

REACTIONS (7)
  - Retinal degeneration [Unknown]
  - Toxicity to various agents [Unknown]
  - Dyskinesia [Recovering/Resolving]
  - Hypersomnia [Recovering/Resolving]
  - Magnetic resonance imaging brain abnormal [Unknown]
  - Encephalopathy [Recovering/Resolving]
  - Lipomatosis [Unknown]
